FAERS Safety Report 14244711 (Version 2)
Quarter: 2018Q1

REPORT INFORMATION
  Report Type: Spontaneous
  Country: US (occurrence: US)
  Receive Date: 20171201
  Receipt Date: 20180102
  Transmission Date: 20180508
  Serious: Yes (Other)
  Sender: FDA-Public Use
  Company Number: US-TEVA-2017-US-828947

PATIENT
  Sex: Female

DRUGS (11)
  1. ACIPHEX [Concomitant]
     Active Substance: RABEPRAZOLE SODIUM
  2. ATENOLOL. [Concomitant]
     Active Substance: ATENOLOL
  3. IMDUR [Concomitant]
     Active Substance: ISOSORBIDE MONONITRATE
  4. COQ10 [Concomitant]
     Active Substance: UBIDECARENONE
  5. ROSUVASTATIN. [Suspect]
     Active Substance: ROSUVASTATIN
     Indication: TYPE IIA HYPERLIPIDAEMIA
     Dosage: SPLITTING THE 40 MG TABLETS IN HALF
     Dates: start: 20171026, end: 20171117
  6. WARFARIN [Concomitant]
     Active Substance: WARFARIN
     Dates: end: 20171117
  7. ROSUVASTATIN. [Suspect]
     Active Substance: ROSUVASTATIN
     Dosage: SPLITTING THE 40 MG TABLETS IN HALF
     Dates: start: 20171024, end: 20171117
  8. ATORVASTATIN [Concomitant]
     Active Substance: ATORVASTATIN
  9. VITAMIN D                          /00107901/ [Concomitant]
     Active Substance: ERGOCALCIFEROL
  10. CRESTOR [Concomitant]
     Active Substance: ROSUVASTATIN CALCIUM
  11. ZETIA [Concomitant]
     Active Substance: EZETIMIBE

REACTIONS (7)
  - Wrong technique in product usage process [Unknown]
  - Rash [Recovered/Resolved]
  - Rash papular [Unknown]
  - Product use in unapproved indication [Unknown]
  - Pruritus [Recovering/Resolving]
  - Angioedema [Unknown]
  - Muscle spasms [Unknown]

NARRATIVE: CASE EVENT DATE: 20171101
